FAERS Safety Report 7794239-5 (Version None)
Quarter: 2011Q4

REPORT INFORMATION
  Report Type: 
  Country: None (occurrence: None)
  Receive Date: 20111004
  Receipt Date: 20110926
  Transmission Date: 20120403
  Serious: Yes (Other)
  Sender: FDA-Public Use
  Company Number: US-ASTELLAS-2011US005286

PATIENT
  Age: 50 Year
  Sex: Female

DRUGS (2)
  1. INVANZ [Suspect]
     Indication: PRODUCT USED FOR UNKNOWN INDICATION
     Dosage: UNK
     Route: 065
     Dates: start: 20110729, end: 20110817
  2. VIBATIV [Suspect]
     Indication: CELLULITIS
     Dosage: UNK
     Route: 042
     Dates: start: 20110729, end: 20110817

REACTIONS (1)
  - PLATELET COUNT DECREASED [None]
